FAERS Safety Report 9336639 (Version 6)
Quarter: 2014Q1

REPORT INFORMATION
  Report Type: Report from Study
  Country: FR (occurrence: FR)
  Receive Date: 20130607
  Receipt Date: 20140101
  Transmission Date: 20141002
  Serious: Yes (Life-Threatening, Hospitalization)
  Sender: FDA-Public Use
  Company Number: FR-ROCHE-1179828

PATIENT
  Age: 45 Year
  Sex: Male
  Weight: 62 kg

DRUGS (13)
  1. PEG-INTERFERON ALFA 2A [Suspect]
     Indication: HEPATITIS C
     Route: 058
     Dates: start: 20120718, end: 20130529
  2. RIBAVIRIN [Suspect]
     Indication: HEPATITIS C
     Route: 048
     Dates: start: 20120718, end: 20130604
  3. TELAPREVIR [Suspect]
     Indication: HEPATITIS C
     Route: 048
     Dates: start: 20120718, end: 20120718
  4. TELAPREVIR [Suspect]
     Route: 048
     Dates: start: 20120719, end: 20121009
  5. PARACETAMOL [Concomitant]
     Indication: INFLUENZA LIKE ILLNESS
     Route: 065
     Dates: start: 20120718
  6. ASPEGIC (FRANCE) [Concomitant]
     Route: 065
  7. EXFORGE [Concomitant]
     Route: 065
  8. NEBILOX [Concomitant]
     Route: 065
  9. LEXOMIL [Concomitant]
     Route: 065
  10. CORTANCYL [Concomitant]
     Route: 065
     Dates: start: 20120720
  11. IMOVANE [Concomitant]
     Route: 065
     Dates: start: 20120829
  12. CELLCEPT [Concomitant]
     Indication: IMMUNOSUPPRESSION
     Route: 065
     Dates: start: 20121208
  13. OMEPRAZOLE BEXAL [Concomitant]
     Indication: MOUTH ULCERATION
     Route: 065
     Dates: start: 20121228

REACTIONS (4)
  - Weight decreased [Recovered/Resolved]
  - Anaemia [Recovered/Resolved]
  - Pancytopenia [Recovered/Resolved]
  - Asthenia [Recovered/Resolved]
